FAERS Safety Report 8046510-X (Version None)
Quarter: 2012Q1

REPORT INFORMATION
  Report Type: 
  Country: None (occurrence: None)
  Receive Date: 20120113
  Receipt Date: 20120109
  Transmission Date: 20120608
  Serious: Yes (Hospitalization)
  Sender: FDA-Public Use
  Company Number: US-ABBOTT-12P-163-0891343-00

PATIENT
  Sex: Male
  Weight: 118.04 kg

DRUGS (3)
  1. HUMIRA [Suspect]
     Indication: PSORIATIC ARTHROPATHY
     Route: 058
     Dates: start: 20110501
  2. HUMIRA [Suspect]
     Indication: CROHN'S DISEASE
     Route: 058
     Dates: start: 20050101, end: 20100101
  3. UNKNOWN MEDICATIONS [Concomitant]
     Indication: MENTAL DISORDER
     Route: 048

REACTIONS (3)
  - MENTAL DISORDER [None]
  - PNEUMONIA [None]
  - DEHYDRATION [None]
